FAERS Safety Report 14989257 (Version 1)
Quarter: 2018Q2

REPORT INFORMATION
  Report Type: Spontaneous
  Country: SE (occurrence: SE)
  Receive Date: 20180608
  Receipt Date: 20180608
  Transmission Date: 20180711
  Serious: Yes (Other)
  Sender: FDA-Public Use
  Company Number: SE-NAPPMUNDI-GBR-2018-0056485

PATIENT
  Age: 67 Year
  Sex: Female

DRUGS (18)
  1. ALVEDON [Concomitant]
     Active Substance: ACETAMINOPHEN
  2. LANTUS [Concomitant]
     Active Substance: INSULIN GLARGINE
  3. GABAPENTIN. [Concomitant]
     Active Substance: GABAPENTIN
  4. LOSARTAN. [Concomitant]
     Active Substance: LOSARTAN
  5. LASIX [Concomitant]
     Active Substance: FUROSEMIDE
  6. ERGENYL [Concomitant]
     Active Substance: VALPROIC ACID
  7. CANODERM [Concomitant]
  8. NOVORAPID [Concomitant]
     Active Substance: INSULIN ASPART
  9. ATORVASTATIN [Concomitant]
     Active Substance: ATORVASTATIN
  10. LAMOTRIGINE. [Concomitant]
     Active Substance: LAMOTRIGINE
  11. TROMBYL [Concomitant]
     Active Substance: ASPIRIN
  12. DOXAZOSIN [Concomitant]
     Active Substance: DOXAZOSIN\DOXAZOSIN MESYLATE
  13. LOCOBASE LPL [Concomitant]
  14. EZETROL [Concomitant]
     Active Substance: EZETIMIBE
  15. LERCANIDIPINE [Concomitant]
     Active Substance: LERCANIDIPINE
  16. METOPROLOL. [Concomitant]
     Active Substance: METOPROLOL
  17. OXYCONTIN [Suspect]
     Active Substance: OXYCODONE HYDROCHLORIDE
     Indication: AMPUTATION STUMP PAIN
     Dosage: 10 MG, DAILY
     Route: 065
     Dates: start: 20171103, end: 20171107
  18. SAROTEN [Concomitant]
     Active Substance: AMITRIPTYLINE

REACTIONS (4)
  - Urinary retention [Recovered/Resolved]
  - Tremor [Recovered/Resolved]
  - Muscular weakness [Not Recovered/Not Resolved]
  - Diplopia [Recovered/Resolved]

NARRATIVE: CASE EVENT DATE: 20171104
